FAERS Safety Report 26153863 (Version 1)
Quarter: 2025Q4

REPORT INFORMATION
  Report Type: Spontaneous
  Country: US (occurrence: US)
  Receive Date: 20251214
  Receipt Date: 20251214
  Transmission Date: 20260118
  Serious: No
  Sender: ALEXION PHARMACEUTICALS
  Company Number: US-AstraZeneca-CH-01013274A

PATIENT
  Sex: Female
  Weight: 110.4 kg

DRUGS (1)
  1. SAPHNELO [Suspect]
     Active Substance: ANIFROLUMAB-FNIA
     Indication: Lupus nephritis
     Dosage: 300 MILLIGRAM, Q4W
     Dates: start: 20251010

REACTIONS (3)
  - Chest discomfort [Unknown]
  - Flushing [Unknown]
  - Dyspnoea [Unknown]
